FAERS Safety Report 8140506-5 (Version None)
Quarter: 2012Q1

REPORT INFORMATION
  Report Type: 
  Country: None (occurrence: None)
  Receive Date: 20120214
  Receipt Date: 20120214
  Transmission Date: 20120608
  Serious: Yes (Hospitalization)
  Sender: FDA-Public Use
  Company Number: None

PATIENT
  Age: 61 Year
  Sex: Male
  Weight: 88 kg

DRUGS (1)
  1. BUPIVACAINE HCL [Suspect]
     Indication: PAIN
     Dosage: 0.75 ML SQ
     Route: 058
     Dates: start: 20111216, end: 20111216

REACTIONS (2)
  - TACHYPNOEA [None]
  - HYPOTENSION [None]
